FAERS Safety Report 12429916 (Version 1)
Quarter: 2016Q2

REPORT INFORMATION
  Report Type: Spontaneous
  Country: US (occurrence: US)
  Receive Date: 20160602
  Receipt Date: 20160602
  Transmission Date: 20160815
  Serious: Yes (Other)
  Sender: FDA-Public Use
  Company Number: US-MDT-ADR-2015-02413

PATIENT
  Age: 50 Year
  Sex: Male

DRUGS (1)
  1. COMPOUNDED BACLOFEN [Suspect]
     Active Substance: BACLOFEN
     Dosage: APPROXIMATELY 500/DAY
     Route: 037

REACTIONS (4)
  - Overdose [Unknown]
  - Post lumbar puncture syndrome [Unknown]
  - Respiratory disorder [Unknown]
  - Therapeutic response unexpected [Unknown]
